FAERS Safety Report 22624117 (Version 1)
Quarter: 2023Q2

REPORT INFORMATION
  Report Type: Spontaneous
  Country: GB (occurrence: None)
  Receive Date: 20230619
  Receipt Date: 20230619
  Transmission Date: 20230721
  Serious: Yes (unspecified)
  Sender: FDA-Public Use
  Company Number: None

PATIENT
  Age: 31 Year
  Sex: Female
  Weight: 49 kg

DRUGS (1)
  1. CORTICOSTEROID NOS [Suspect]
     Active Substance: CORTICOSTEROID NOS
     Indication: Eczema

REACTIONS (8)
  - Pruritus [None]
  - Erythema [None]
  - Skin exfoliation [None]
  - Skin burning sensation [None]
  - Dry skin [None]
  - Skin weeping [None]
  - Steroid withdrawal syndrome [None]
  - Therapy cessation [None]

NARRATIVE: CASE EVENT DATE: 20230601
